FAERS Safety Report 8307844-4 (Version None)
Quarter: 2012Q2

REPORT INFORMATION
  Report Type: 
  Country: None (occurrence: None)
  Receive Date: 20120424
  Receipt Date: 20120412
  Transmission Date: 20120825
  Serious: Yes (Hospitalization)
  Sender: FDA-Public Use
  Company Number: US-ACTELION-A-US2012-60628

PATIENT

DRUGS (4)
  1. COUMADIN [Concomitant]
  2. EPOPROSTENOL SODIUM [Suspect]
     Indication: PULMONARY ARTERIAL HYPERTENSION
     Dosage: 25 NG/KG, PER MIN
     Route: 042
     Dates: start: 20111018
  3. TRACLEER [Suspect]
     Indication: PULMONARY ARTERIAL HYPERTENSION
     Dosage: UNK
     Route: 048
     Dates: start: 20090421
  4. ADCIRCA [Concomitant]
     Dosage: UNK
     Dates: start: 20111001

REACTIONS (13)
  - DRY SKIN [None]
  - LOCAL SWELLING [None]
  - CATHETER SITE INFECTION [None]
  - CATHETER SITE ERYTHEMA [None]
  - CHILLS [None]
  - SKIN WARM [None]
  - CATHETER SITE PAIN [None]
  - STAPHYLOCOCCAL BACTERAEMIA [None]
  - NECK PAIN [None]
  - DEVICE RELATED SEPSIS [None]
  - FATIGUE [None]
  - MALAISE [None]
  - BLOOD CULTURE POSITIVE [None]
